FAERS Safety Report 7769689-3 (Version None)
Quarter: 2011Q3

REPORT INFORMATION
  Report Type: 
  Country: None (occurrence: None)
  Receive Date: 20110922
  Receipt Date: 20110603
  Transmission Date: 20111222
  Serious: Yes (Other)
  Sender: FDA-Public Use
  Company Number: US-ASTRAZENECA-2009UW21054

PATIENT
  Age: 62 Year
  Sex: Male
  Weight: 72.6 kg

DRUGS (15)
  1. GEODON [Concomitant]
     Dates: start: 20050101
  2. LAMICTAL [Concomitant]
     Dates: start: 20051006
  3. PREVACID [Concomitant]
     Dosage: AM
     Dates: start: 20051108
  4. LEXAPRO [Concomitant]
     Dosage: 10 MG, 1/2 TAB
     Dates: start: 20091110
  5. SEROQUEL [Suspect]
     Indication: BIPOLAR DISORDER
     Dosage: 25 MG, 100 MG, 200 MG
     Route: 048
     Dates: start: 20050101, end: 20060101
  6. LETHIUM [Concomitant]
     Dosage: 50 MG, II TABS
     Dates: start: 20091110
  7. RISPERDAL [Concomitant]
     Dates: start: 20050101
  8. ZYPREXA [Concomitant]
     Dates: start: 20050101
  9. LYRICA [Concomitant]
     Dates: start: 20091110
  10. COMPAZINE [Concomitant]
     Indication: NAUSEA
     Dosage: 10 MG, 6 HRS PRN
     Dates: start: 20060120
  11. TRAZODONE HCL [Concomitant]
     Dosage: QHS
     Dates: start: 20091110
  12. SEROQUEL [Suspect]
     Dosage: 25 MG TO 200 MG HS
     Route: 048
     Dates: start: 20051006
  13. ZYPREXA [Concomitant]
     Dates: start: 20051006
  14. AMBIEN [Concomitant]
     Dates: start: 20060125
  15. GEODON [Concomitant]
     Dates: start: 20051108

REACTIONS (1)
  - PANCREATITIS [None]
